FAERS Safety Report 6887216-X (Version None)
Quarter: 2010Q3

REPORT INFORMATION
  Report Type: 
  Country: None (occurrence: None)
  Receive Date: 20100730
  Receipt Date: 20100722
  Transmission Date: 20110219
  Serious: No
  Sender: FDA-Public Use
  Company Number: US-ROXANE LABORATORIES, INC.-2010-RO-00706RO

PATIENT
  Sex: Male
  Weight: 25 kg

DRUGS (2)
  1. LEVETIRACETAM [Suspect]
     Indication: CONVULSION
     Route: 048
     Dates: start: 20100521
  2. LEVETIRACETAM [Suspect]
     Dosage: 10 ML
     Route: 048
     Dates: start: 20100520

REACTIONS (1)
  - MYDRIASIS [None]
